FAERS Safety Report 7802994-0 (Version None)
Quarter: 2011Q4

REPORT INFORMATION
  Report Type: 
  Country: None (occurrence: None)
  Receive Date: 20111007
  Receipt Date: 20110926
  Transmission Date: 20120403
  Serious: Yes (Hospitalization)
  Sender: FDA-Public Use
  Company Number: KR-BRISTOL-MYERS SQUIBB COMPANY-16093981

PATIENT
  Age: 20 Year
  Sex: Female

DRUGS (3)
  1. ZYPREXA ZYDIS [Suspect]
     Indication: PSYCHOTIC DISORDER
     Dosage: DECREASED TO 5MG AS MAINTANANCE DOSE.
     Route: 048
  2. ARIPIPRAZOLE [Suspect]
     Indication: PSYCHOTIC DISORDER
  3. RISPERIDONE [Suspect]
     Indication: PSYCHOTIC DISORDER

REACTIONS (2)
  - CATATONIA [None]
  - NEUROLEPTIC MALIGNANT SYNDROME [None]
